FAERS Safety Report 11287869 (Version 1)
Quarter: 2015Q3

REPORT INFORMATION
  Report Type: Spontaneous
  Country: US (occurrence: US)
  Receive Date: 20150721
  Receipt Date: 20150721
  Transmission Date: 20151125
  Serious: No
  Sender: FDA-Public Use
  Company Number: US-UNITED THERAPEUTICS-UNT-2015-001784

PATIENT
  Sex: Female
  Weight: 62.59 kg

DRUGS (3)
  1. REMODULIN [Suspect]
     Active Substance: TREPROSTINIL
     Indication: PULMONARY ARTERIAL HYPERTENSION
     Dosage: 0.086 ?G/KG/MIN, CONTINUING
     Route: 058
     Dates: start: 20140630
  2. COUMADIN [Concomitant]
     Active Substance: WARFARIN SODIUM
     Indication: PRODUCT USED FOR UNKNOWN INDICATION
  3. OPSUMIT [Concomitant]
     Active Substance: MACITENTAN
     Indication: PRODUCT USED FOR UNKNOWN INDICATION

REACTIONS (8)
  - Dizziness [Unknown]
  - Infusion site pain [Unknown]
  - Rash [Unknown]
  - Pain [Unknown]
  - Pulmonary arterial hypertension [Unknown]
  - Malaise [Not Recovered/Not Resolved]
  - Infusion site infection [Unknown]
  - Medical device complication [Unknown]
